FAERS Safety Report 8391581-4 (Version None)
Quarter: 2012Q2

REPORT INFORMATION
  Report Type: 
  Country: None (occurrence: None)
  Receive Date: 20120529
  Receipt Date: 20120523
  Transmission Date: 20120825
  Serious: Yes (Other)
  Sender: FDA-Public Use
  Company Number: PHEH2012US005012

PATIENT
  Sex: Female

DRUGS (1)
  1. GILENYA [Suspect]
     Indication: MULTIPLE SCLEROSIS
     Dosage: 0.5 MG, QD
     Route: 048
     Dates: start: 20111107

REACTIONS (6)
  - DRY SKIN [None]
  - WHITE BLOOD CELL COUNT DECREASED [None]
  - SQUAMOUS CELL CARCINOMA [None]
  - SKIN EXFOLIATION [None]
  - PAIN OF SKIN [None]
  - LYMPHOCYTE COUNT DECREASED [None]
